FAERS Safety Report 8748570 (Version 3)
Quarter: 2012Q4

REPORT INFORMATION
  Report Type: 
  Country: JP (occurrence: JP)
  Receive Date: 20120827
  Receipt Date: 20121011
  Transmission Date: 20130627
  Serious: Yes (Other)
  Sender: FDA-Public Use
  Company Number: JP-PFIZER INC-2012206733

PATIENT
  Age: 64 Year
  Sex: Female

DRUGS (5)
  1. LYRICA [Suspect]
     Indication: PAIN
     Dosage: UNK
     Route: 048
     Dates: start: 20120807
  2. LYRICA [Suspect]
     Dosage: UNK
     Route: 048
     Dates: start: 20120818, end: 20120818
  3. LYRICA [Suspect]
     Dosage: UNK
     Route: 048
     Dates: start: 20120819, end: 20120820
  4. ROCEPHIN [Suspect]
     Indication: MYELITIS
     Dosage: UNK
  5. TAKEPRON [Suspect]
     Indication: NAUSEA
     Dosage: UNK

REACTIONS (2)
  - Drug eruption [Recovered/Resolved]
  - Dizziness [Unknown]
